FAERS Safety Report 12887944 (Version 3)
Quarter: 2016Q4

REPORT INFORMATION
  Report Type: Report from Study
  Country: FR (occurrence: FR)
  Receive Date: 20161027
  Receipt Date: 20161212
  Transmission Date: 20170207
  Serious: Yes (Hospitalization)
  Sender: FDA-Public Use
  Company Number: FR-ROCHE-1845611

PATIENT
  Age: 63 Year
  Sex: Male
  Weight: 93 kg

DRUGS (7)
  1. ACONITUM NAPELLUS [Concomitant]
     Active Substance: ACONITUM NAPELLUS
     Indication: ANXIETY
     Route: 065
     Dates: start: 20160830
  2. ATEZOLIZUMAB [Suspect]
     Active Substance: ATEZOLIZUMAB
     Indication: NON-SMALL CELL LUNG CANCER STAGE IV
     Dosage: MOST RECENT DOSE OF 1200MG ADMINISTERED ON 18/OCT/2016 AT 1130
     Route: 042
     Dates: start: 20160830
  3. CARBOPLATIN. [Suspect]
     Active Substance: CARBOPLATIN
     Indication: NON-SMALL CELL LUNG CANCER STAGE IV
     Dosage: MOST RECENT DOSE OF 810MG ADMINISTERED ON 18/OCT/2016 AT 1325?AREA UNDER THE CONCENTRATION CURVE (AU
     Route: 042
     Dates: start: 20160830
  4. OXYNORM [Concomitant]
     Active Substance: OXYCODONE HYDROCHLORIDE
     Indication: PAIN
  5. NAB-PACLITAXEL [Suspect]
     Active Substance: PACLITAXEL
     Indication: NON-SMALL CELL LUNG CANCER STAGE IV
     Dosage: MOST RECENT DOSE OF 225MG ADMINISTERED ON 18/OCT/2016 AT 1240?DAYS 1, 8, AND 15 OF EACH 21-DAY CYCLE
     Route: 042
     Dates: start: 20160830
  6. OXYCONTIN [Concomitant]
     Active Substance: OXYCODONE HYDROCHLORIDE
     Indication: PAIN
     Route: 065
     Dates: start: 20160811
  7. ARSENICUM ALBUM [Concomitant]
     Indication: ANXIETY
     Route: 065
     Dates: start: 20160830

REACTIONS (1)
  - General physical health deterioration [Not Recovered/Not Resolved]

NARRATIVE: CASE EVENT DATE: 20161021
